FAERS Safety Report 10030395 (Version 1)
Quarter: 2014Q1

REPORT INFORMATION
  Report Type: Spontaneous
  Country: US (occurrence: US)
  Receive Date: 20140323
  Receipt Date: 20140323
  Transmission Date: 20141002
  Serious: No
  Sender: FDA-Public Use
  Company Number: US-ALLERGAN-1313392US

PATIENT
  Age: 40 Year
  Sex: Female

DRUGS (3)
  1. LATISSE 0.03% [Suspect]
     Indication: GROWTH OF EYELASHES
     Dosage: UNK, QHS
     Route: 061
  2. ANTIHISTAMINE EYE DROP [Concomitant]
     Indication: EYE IRRITATION
     Dosage: UNK, PRN
     Route: 047
  3. ANTIHISTAMINE EYE DROP [Concomitant]
     Indication: SEASONAL ALLERGY

REACTIONS (6)
  - Hair texture abnormal [Not Recovered/Not Resolved]
  - Blepharal pigmentation [Unknown]
  - Wrong technique in drug usage process [Unknown]
  - Wrong technique in drug usage process [Unknown]
  - Hair growth abnormal [Unknown]
  - Hair growth abnormal [Unknown]
